FAERS Safety Report 12676163 (Version 1)
Quarter: 2016Q3

REPORT INFORMATION
  Report Type: Spontaneous
  Country: US (occurrence: None)
  Receive Date: 20160822
  Receipt Date: 20160822
  Transmission Date: 20161109
  Serious: Yes (Life-Threatening, Disabling)
  Sender: FDA-Public Use
  Company Number: None

PATIENT
  Age: 70 Year
  Sex: Female
  Weight: 90.81 kg

DRUGS (12)
  1. LASIX [Suspect]
     Active Substance: FUROSEMIDE
     Indication: CARDIAC DISORDER
     Route: 048
     Dates: start: 20160806, end: 20160808
  2. DIGOXIN. [Concomitant]
     Active Substance: DIGOXIN
  3. JANTOVEN [Concomitant]
     Active Substance: WARFARIN SODIUM
  4. LOSARTAN. [Concomitant]
     Active Substance: LOSARTAN
  5. DILTIAZEM. [Concomitant]
     Active Substance: DILTIAZEM
  6. BIOTIN [Concomitant]
     Active Substance: BIOTIN
  7. VITAMIN B12 [Concomitant]
     Active Substance: CYANOCOBALAMIN
  8. CARVEDILOL. [Concomitant]
     Active Substance: CARVEDILOL
  9. KLOR-CON [Concomitant]
     Active Substance: POTASSIUM CHLORIDE
  10. OCUVITE [Concomitant]
     Active Substance: VITAMINS
  11. HYDROCODONE ACETAMINOPH [Concomitant]
  12. VITAFUSION [Concomitant]

REACTIONS (1)
  - Cystitis [None]

NARRATIVE: CASE EVENT DATE: 20160806
